FAERS Safety Report 6214905-2 (Version None)
Quarter: 2009Q2

REPORT INFORMATION
  Report Type: 
  Country: None (occurrence: None)
  Receive Date: 20090604
  Receipt Date: 20090203
  Transmission Date: 20091009
  Serious: No
  Sender: FDA-Public Use
  Company Number: US-BAYER-200913351NA

PATIENT
  Age: 45 Year
  Sex: Female
  Weight: 91 kg

DRUGS (1)
  1. ULTRAVIST (PHARMACY BULK) [Suspect]
     Indication: COMPUTERISED TOMOGRAM ABDOMEN
     Dosage: TOTAL DAILY DOSE: 85 ML  UNIT DOSE: 500 ML
     Route: 042
     Dates: start: 20090203, end: 20090203

REACTIONS (3)
  - NAUSEA [None]
  - RASH [None]
  - VOMITING [None]
